FAERS Safety Report 21791723 (Version 1)
Quarter: 2022Q4

REPORT INFORMATION
  Report Type: Report from Study
  Country: US (occurrence: US)
  Receive Date: 20221229
  Receipt Date: 20221229
  Transmission Date: 20230112
  Serious: No
  Sender: FDA-Public Use
  Company Number: US-ABBVIE-4206064

PATIENT
  Sex: Female

DRUGS (2)
  1. SKYRIZI [Suspect]
     Active Substance: RISANKIZUMAB-RZAA
     Indication: Psoriasis
     Route: 058
     Dates: start: 202111
  2. HRT CREAM BASE [Concomitant]
     Indication: Product used for unknown indication
     Dosage: WOMEN CREAM GM

REACTIONS (2)
  - Psoriasis [Unknown]
  - Arthralgia [Unknown]
